FAERS Safety Report 5321590-0 (Version None)
Quarter: 2007Q2

REPORT INFORMATION
  Report Type: 
  Country: None (occurrence: None)
  Receive Date: 20070220
  Receipt Date: 20061107
  Transmission Date: 20071010
  Serious: No
  Sender: FDA-Public Use
  Company Number: TPA2006A02002

PATIENT
  Sex: Female

DRUGS (1)
  1. ROZEREM [Suspect]
     Dates: start: 20060101

REACTIONS (2)
  - ABNORMAL DREAMS [None]
  - INITIAL INSOMNIA [None]
